FAERS Safety Report 23204592 (Version 2)
Quarter: 2023Q4

REPORT INFORMATION
  Report Type: Spontaneous
  Country: US (occurrence: US)
  Receive Date: 20231120
  Receipt Date: 20231208
  Transmission Date: 20240109
  Serious: No
  Sender: FDA-Public Use
  Company Number: US-GLAXOSMITHKLINE-US2023AMR157646

PATIENT
  Sex: Female

DRUGS (1)
  1. ZEJULA [Suspect]
     Active Substance: NIRAPARIB
     Indication: Product used for unknown indication
     Dosage: 300 MG, QD

REACTIONS (6)
  - Nausea [Unknown]
  - Lethargy [Unknown]
  - Vomiting [Unknown]
  - Asthenia [Unknown]
  - Illness [Unknown]
  - Product dose omission issue [Unknown]
